FAERS Safety Report 22013301 (Version 2)
Quarter: 2023Q1

REPORT INFORMATION
  Report Type: Spontaneous
  Country: US (occurrence: US)
  Receive Date: 20230220
  Receipt Date: 20230310
  Transmission Date: 20230418
  Serious: No
  Sender: FDA-Public Use
  Company Number: US-Calliditas-2023CAL00109

PATIENT
  Age: 47 Year
  Sex: Female

DRUGS (1)
  1. TARPEYO [Suspect]
     Active Substance: BUDESONIDE
     Indication: IgA nephropathy
     Dosage: 12 MG (3 CAPSULES) ONCE DAILY
     Route: 048
     Dates: start: 20220716, end: 20230215

REACTIONS (9)
  - Steroid withdrawal syndrome [Recovering/Resolving]
  - Hypersensitivity [Recovering/Resolving]
  - Rosacea [Recovering/Resolving]
  - Synovial rupture [Recovering/Resolving]
  - Feeling abnormal [Recovering/Resolving]
  - Chest pain [Recovering/Resolving]
  - Muscle spasms [Recovering/Resolving]
  - Hypertension [Recovering/Resolving]
  - Anxiety [Recovering/Resolving]
